FAERS Safety Report 8197501-X (Version None)
Quarter: 2012Q1

REPORT INFORMATION
  Report Type: 
  Country: None (occurrence: None)
  Receive Date: 20120309
  Receipt Date: 20120306
  Transmission Date: 20120608
  Serious: Yes (Death)
  Sender: FDA-Public Use
  Company Number: US-PFIZER INC-2012034607

PATIENT
  Sex: Female

DRUGS (1)
  1. SUTENT [Suspect]
     Indication: RECTAL CANCER
     Dosage: 50 MG, 1X/DAY

REACTIONS (2)
  - DISEASE PROGRESSION [None]
  - RECTAL CANCER [None]
